FAERS Safety Report 5991371-3 (Version None)
Quarter: 2008Q4

REPORT INFORMATION
  Report Type: 
  Country: None (occurrence: None)
  Receive Date: 20081202
  Receipt Date: 20080124
  Transmission Date: 20090506
  Serious: Yes (Other)
  Sender: FDA-Public Use
  Company Number: WAES 0801USA04793

PATIENT
  Sex: Female

DRUGS (2)
  1. FOSAMAX [Suspect]
     Indication: OSTEOPOROSIS
     Dosage: 10 MG/DAILY/PO
     Route: 047
     Dates: start: 19960313, end: 19990101
  2. FOSAMAX [Suspect]
     Indication: OSTEOPOROSIS
     Dosage: 70 MG/WKY/PO
     Route: 048
     Dates: start: 20011201, end: 20061002

REACTIONS (11)
  - APHTHOUS STOMATITIS [None]
  - DENTAL CARIES [None]
  - DIPLOPIA [None]
  - FISTULA [None]
  - HYPOAESTHESIA ORAL [None]
  - INFECTION [None]
  - ORAL DISORDER [None]
  - ORAL TORUS [None]
  - OSTEONECROSIS [None]
  - PAIN IN JAW [None]
  - SWELLING [None]
